FAERS Safety Report 8340526-1 (Version None)
Quarter: 2012Q2

REPORT INFORMATION
  Report Type: 
  Country: None (occurrence: None)
  Receive Date: 20120507
  Receipt Date: 20120426
  Transmission Date: 20120825
  Serious: Yes (Hospitalization)
  Sender: FDA-Public Use
  Company Number: CA-JNJFOC-20120413247

PATIENT
  Sex: Male
  Weight: 85.5 kg

DRUGS (5)
  1. ANTIBIOTICS [Concomitant]
     Dosage: FOR 4 DAYS
     Route: 042
  2. PREDNISONE [Concomitant]
     Route: 065
  3. IMURAN [Concomitant]
     Route: 065
  4. REMICADE [Suspect]
     Indication: CROHN'S DISEASE
     Route: 042
     Dates: start: 20111125
  5. PREDNISONE [Concomitant]
     Route: 065

REACTIONS (1)
  - INTESTINAL STENOSIS [None]
